FAERS Safety Report 4618954-7 (Version None)
Quarter: 2005Q1

REPORT INFORMATION
  Report Type: 
  Country: None (occurrence: None)
  Receive Date: 20050325
  Receipt Date: 20050315
  Transmission Date: 20050727
  Serious: Yes (Hospitalization, Other)
  Sender: FDA-Public Use
  Company Number: GB-JNJFOC-20050304067

PATIENT
  Sex: Female
  Weight: 61 kg

DRUGS (7)
  1. REMICADE [Suspect]
     Indication: RHEUMATOID ARTHRITIS
     Route: 042
  2. PREDNISOLONE [Concomitant]
  3. CALCIUM GLUCONATE [Concomitant]
  4. DICLOFENAC [Concomitant]
  5. FERROUS SULFATE TAB [Concomitant]
  6. METHOTREXATE [Concomitant]
  7. VITAMIN D [Concomitant]

REACTIONS (2)
  - MALAISE [None]
  - MUSCULOSKELETAL STIFFNESS [None]
